FAERS Safety Report 8556412-8 (Version None)
Quarter: 2012Q3

REPORT INFORMATION
  Report Type: 
  Country: None (occurrence: None)
  Receive Date: 20120801
  Receipt Date: 20120725
  Transmission Date: 20120928
  Serious: Yes (Other)
  Sender: FDA-Public Use
  Company Number: PHEH2012US014686

PATIENT
  Sex: Male

DRUGS (2)
  1. TEGRETOL-XR [Suspect]
     Dosage: 1200 MG, UNK
  2. TEGRETOL-XR [Suspect]
     Dosage: 1200 MG, UNK
     Route: 064

REACTIONS (2)
  - ASTHMA [None]
  - LEARNING DISABILITY [None]
